FAERS Safety Report 12262674 (Version 2)
Quarter: 2016Q2

REPORT INFORMATION
  Report Type: Spontaneous
  Country: US (occurrence: US)
  Receive Date: 20160413
  Receipt Date: 20160524
  Transmission Date: 20160815
  Serious: No
  Sender: FDA-Public Use
  Company Number: US-ASTRAZENECA-2016SE30561

PATIENT
  Sex: Male
  Weight: 104.8 kg

DRUGS (7)
  1. CARVEDILOL. [Concomitant]
     Active Substance: CARVEDILOL
     Indication: HYPERTENSION
     Dates: start: 201112
  2. PRAVASTATIN [Concomitant]
     Active Substance: PRAVASTATIN\PRAVASTATIN SODIUM
     Indication: BLOOD CHOLESTEROL INCREASED
     Dates: start: 201112
  3. TAMSULOSIN [Concomitant]
     Active Substance: TAMSULOSIN
     Indication: MICTURITION DISORDER
  4. SYMBICORT [Suspect]
     Active Substance: BUDESONIDE\FORMOTEROL FUMARATE DIHYDRATE
     Indication: ASPIRATION BRONCHIAL
     Dosage: 80/4.5 MCG 120 INHALATIONS, ONE PUFF TWICE A DAY
     Route: 055
     Dates: start: 20160216
  5. SYMBICORT [Suspect]
     Active Substance: BUDESONIDE\FORMOTEROL FUMARATE DIHYDRATE
     Indication: ASPIRATION BRONCHIAL
     Route: 055
     Dates: start: 2010
  6. RAMIPRIL. [Concomitant]
     Active Substance: RAMIPRIL
     Indication: VASODILATATION
     Dates: start: 201112
  7. SYMBICORT [Suspect]
     Active Substance: BUDESONIDE\FORMOTEROL FUMARATE DIHYDRATE
     Indication: ASPIRATION BRONCHIAL
     Dosage: 80/4.5 MCG 120 INHALATIONS, ONE PUFF TWICE A DAY
     Route: 055
     Dates: start: 201511

REACTIONS (4)
  - Dry mouth [Unknown]
  - Device malfunction [Unknown]
  - Intentional product use issue [Unknown]
  - Dyspnoea [Unknown]
